FAERS Safety Report 20657408 (Version 2)
Quarter: 2022Q2

REPORT INFORMATION
  Report Type: Spontaneous
  Country: DE (occurrence: DE)
  Receive Date: 20220331
  Receipt Date: 20220407
  Transmission Date: 20220721
  Serious: No
  Sender: FDA-Public Use
  Company Number: DE-UCBSA-2022018838

PATIENT

DRUGS (1)
  1. NEUPRO [Suspect]
     Active Substance: ROTIGOTINE
     Indication: Product used for unknown indication
     Dosage: 6 MILLIGRAM, ONCE DAILY (QD)

REACTIONS (2)
  - Device adhesion issue [Unknown]
  - Drug ineffective [Unknown]
